FAERS Safety Report 18792668 (Version 3)
Quarter: 2021Q2

REPORT INFORMATION
  Report Type: Report from Study
  Country: TW (occurrence: TW)
  Receive Date: 20210127
  Receipt Date: 20210422
  Transmission Date: 20210717
  Serious: Yes (Hospitalization)
  Sender: FDA-Public Use
  Company Number: TW-BEIGENE AUS PTY LTD-BGN-2021-000207

PATIENT

DRUGS (9)
  1. BGB?3111 [Suspect]
     Active Substance: ZANUBRUTINIB
     Dosage: 80 MILLIGRAM, BID
     Route: 048
     Dates: start: 20210106, end: 20210112
  2. ENTECAVIR. [Concomitant]
     Active Substance: ENTECAVIR
     Indication: HEPATITIS B
     Dosage: 0.5 MILLIGRAM, QD
     Route: 048
     Dates: start: 20190321
  3. BGB?3111 [Suspect]
     Active Substance: ZANUBRUTINIB
     Indication: LYMPHOMA
     Dosage: 160 MILLIGRAM, BID
     Route: 048
     Dates: start: 20201230, end: 20210105
  4. OBINUTUZUMAB. [Suspect]
     Active Substance: OBINUTUZUMAB
     Indication: LYMPHOMA
     Dosage: 1000 MILLIGRAM, AS PROTOCOL DESIGN
     Route: 042
     Dates: start: 20201230
  5. FLUOROMETHOLONE. [Concomitant]
     Active Substance: FLUOROMETHOLONE
     Indication: OCULAR HYPERTENSION
     Dosage: 1 QUANTUM SUFFICIT, BID
     Route: 047
     Dates: start: 20190102
  6. NEOSTIGMINE METHYLSULFATE. [Concomitant]
     Active Substance: NEOSTIGMINE METHYLSULFATE
     Indication: CATARACT
     Dosage: 1 QUANTUM SUFFICIT, TID
     Route: 047
     Dates: start: 20190424
  7. BGB?3111 [Suspect]
     Active Substance: ZANUBRUTINIB
     Dosage: 80 MILLIGRAM, QD
     Route: 048
     Dates: start: 20200113, end: 20210120
  8. BRINZOLAMIDE [Concomitant]
     Active Substance: BRINZOLAMIDE
     Indication: OCULAR HYPERTENSION
     Dosage: 1 QUANTUM SUFFICIT, BID
     Route: 047
     Dates: start: 20181128
  9. BRIMONIDINE W/TIMOLOL [Concomitant]
     Active Substance: BRIMONIDINE TARTRATE\TIMOLOL MALEATE
     Indication: OCULAR HYPERTENSION
     Dosage: 1 QUANTUM SUFFICIT, BID
     Route: 047
     Dates: start: 20181128

REACTIONS (1)
  - Herpes zoster [Recovered/Resolved with Sequelae]

NARRATIVE: CASE EVENT DATE: 20210123
